FAERS Safety Report 6890102-2 (Version None)
Quarter: 2010Q3

REPORT INFORMATION
  Report Type: 
  Country: None (occurrence: None)
  Receive Date: 20100730
  Receipt Date: 20080801
  Transmission Date: 20110219
  Serious: Yes (Other)
  Sender: FDA-Public Use
  Company Number: US-PFIZER INC-2008035927

PATIENT
  Sex: Female
  Weight: 81.6 kg

DRUGS (5)
  1. LIPITOR [Suspect]
     Indication: BLOOD CHOLESTEROL INCREASED
     Route: 048
     Dates: start: 19991101, end: 20070801
  2. SOTALOL HCL [Concomitant]
  3. PRILOSEC [Concomitant]
  4. WARFARIN SODIUM [Concomitant]
  5. VALSARTAN [Concomitant]

REACTIONS (7)
  - COGNITIVE DISORDER [None]
  - CONFUSIONAL STATE [None]
  - DRUG EFFECT DECREASED [None]
  - HYPERTENSION [None]
  - MEMORY IMPAIRMENT [None]
  - MENTAL IMPAIRMENT [None]
  - WEIGHT ABNORMAL [None]
